FAERS Safety Report 9841598 (Version 1)
Quarter: 2013Q4

REPORT INFORMATION
  Report Type: Spontaneous
  Country: US (occurrence: None)
  Receive Date: 20131219
  Receipt Date: 20131219
  Transmission Date: 20140711
  Serious: Yes (Death)
  Sender: FDA-Public Use
  Company Number: 163-20785-13054610

PATIENT
  Age: 80 Year
  Sex: Male

DRUGS (11)
  1. THALOMID [Suspect]
     Indication: PLASMA CELL MYELOMA
     Dosage: 200 MG, 4 IN 1 D, PO
     Route: 048
     Dates: start: 200910
  2. COREG CR (CARVEDILOL) [Concomitant]
  3. ALPHAGAN P (BRIMONIDINE TARTRATE) [Concomitant]
  4. UROXATRAL (ALFUZOSIN HYDROCHLORIDE) [Concomitant]
  5. GLUCOTROL (GLIPIZIDE) [Concomitant]
  6. FUROSEMIDE (FUROSEMIDE) [Concomitant]
  7. TRAVATAN (TRAVOPROST) [Concomitant]
  8. NARDIL (PHENELZINE SULFATE) [Concomitant]
  9. NEURONTIN (GABAPENTIN) [Concomitant]
  10. SYNTHROID (LEVOTHYROXINE SODIUM) [Concomitant]
  11. ALLOPURINOL (ALLOPURINOL) [Concomitant]

REACTIONS (1)
  - Death [None]
